FAERS Safety Report 25259683 (Version 1)
Quarter: 2025Q2

REPORT INFORMATION
  Report Type: Spontaneous
  Country: US (occurrence: None)
  Receive Date: 20250430
  Receipt Date: 20250430
  Transmission Date: 20250716
  Serious: No
  Sender: FDA-CTU
  Company Number: None

PATIENT
  Age: 72 Year
  Weight: 54.5 kg

DRUGS (1)
  1. SYNJARDY [Suspect]
     Active Substance: EMPAGLIFLOZIN\METFORMIN HYDROCHLORIDE
     Dosage: FREQUENCY : TWICE A DAY;?
     Route: 048
     Dates: start: 20240401, end: 20250422

REACTIONS (2)
  - Urinary tract infection [None]
  - Device related infection [None]

NARRATIVE: CASE EVENT DATE: 20250413
